FAERS Safety Report 7759161-9 (Version None)
Quarter: 2011Q3

REPORT INFORMATION
  Report Type: 
  Country: None (occurrence: None)
  Receive Date: 20110919
  Receipt Date: 20110913
  Transmission Date: 20111222
  Serious: Yes (Hospitalization)
  Sender: FDA-Public Use
  Company Number: PHHY2011DE81978

PATIENT
  Sex: Female

DRUGS (2)
  1. ESTRATEST [Suspect]
     Indication: HORMONE REPLACEMENT THERAPY
     Dosage: UNK UKN, UNK
     Route: 062
     Dates: start: 20040301, end: 20110801
  2. HEPARIN [Concomitant]
     Indication: THROMBOSIS PROPHYLAXIS
     Dosage: UNK UKN, UNK
     Route: 058
     Dates: start: 20110901

REACTIONS (2)
  - MENISCUS LESION [None]
  - OSTEOARTHRITIS [None]
